FAERS Safety Report 24291290 (Version 1)
Quarter: 2024Q3

REPORT INFORMATION
  Report Type: Spontaneous
  Country: US (occurrence: None)
  Receive Date: 20240906
  Receipt Date: 20240906
  Transmission Date: 20241016
  Serious: No
  Sender: DOMPE FARMACEUTICI
  Company Number: US-FARMAPROD-202308-2305

PATIENT
  Sex: Male

DRUGS (7)
  1. OXERVATE [Suspect]
     Active Substance: CENEGERMIN-BKBJ
     Indication: Neurotrophic keratopathy
     Route: 047
     Dates: start: 20191004, end: 20191129
  2. OXERVATE [Suspect]
     Active Substance: CENEGERMIN-BKBJ
     Route: 047
     Dates: start: 20230724
  3. OXERVATE [Suspect]
     Active Substance: CENEGERMIN-BKBJ
  4. OXERVATE [Suspect]
     Active Substance: CENEGERMIN-BKBJ
  5. ASPIRIN [Concomitant]
     Active Substance: ASPIRIN
  6. FELODIPINE [Concomitant]
     Active Substance: FELODIPINE
     Dosage: FOR 24 HOURS
  7. ATENOLOL [Concomitant]
     Active Substance: ATENOLOL

REACTIONS (4)
  - Product storage error [Unknown]
  - Eye pain [Unknown]
  - Eye irritation [Unknown]
  - Eye swelling [Unknown]
